FAERS Safety Report 6121416-1 (Version None)
Quarter: 2009Q1

REPORT INFORMATION
  Report Type: 
  Country: None (occurrence: None)
  Receive Date: 20090313
  Receipt Date: 20090313
  Transmission Date: 20090719
  Serious: Yes (Hospitalization)
  Sender: FDA-Public Use
  Company Number: None

PATIENT
  Sex: Male
  Weight: 77.5651 kg

DRUGS (11)
  1. TEMOZOLOMIDE [Suspect]
     Indication: GLIOBLASTOMA MULTIFORME
     Dosage: 140 MG QD PO
     Route: 048
     Dates: start: 20090202, end: 20090309
  2. TEMOZOLOMIDE [Suspect]
  3. COLACE [Concomitant]
  4. EFFEXOR XR [Concomitant]
  5. KEFLEX [Concomitant]
  6. LEVETIRACETAM [Concomitant]
  7. MIRTAZAPINE [Concomitant]
  8. PENTAMIDINE ISETHIONATE [Concomitant]
  9. SENNOSIDES [Concomitant]
  10. SEROQUEL [Concomitant]
  11. ZOFRAN [Concomitant]

REACTIONS (1)
  - WOUND INFECTION [None]
